FAERS Safety Report 25765465 (Version 1)
Quarter: 2025Q3

REPORT INFORMATION
  Report Type: Spontaneous
  Country: US (occurrence: US)
  Receive Date: 20250905
  Receipt Date: 20250905
  Transmission Date: 20251020
  Serious: Yes (Hospitalization)
  Sender: APOTEX
  Company Number: US-APOTEX-2025AP012481

PATIENT
  Sex: Male

DRUGS (6)
  1. PAROXETINE [Suspect]
     Active Substance: PAROXETINE
     Indication: Hot flush
     Route: 065
  2. PAROXETINE [Suspect]
     Active Substance: PAROXETINE
     Indication: Prophylaxis
  3. ORGOVYX [Suspect]
     Active Substance: RELUGOLIX
     Indication: Prostate cancer
     Dosage: 120 MILLIGRAM, QD
     Route: 048
     Dates: end: 20240602
  4. ORGOVYX [Suspect]
     Active Substance: RELUGOLIX
     Route: 065
  5. ORGOVYX [Suspect]
     Active Substance: RELUGOLIX
     Route: 065
     Dates: start: 20250613
  6. LOSARTAN [Concomitant]
     Active Substance: LOSARTAN
     Indication: Product used for unknown indication
     Route: 065

REACTIONS (8)
  - Intervertebral disc disorder [Unknown]
  - Cardiac disorder [Unknown]
  - Balance disorder [Unknown]
  - Eye irritation [Unknown]
  - Central obesity [Unknown]
  - Dizziness [Unknown]
  - Hypertension [Unknown]
  - Blood cholesterol increased [Unknown]
